FAERS Safety Report 23904240 (Version 1)
Quarter: 2024Q2

REPORT INFORMATION
  Report Type: Spontaneous
  Country: JP (occurrence: JP)
  Receive Date: 20240527
  Receipt Date: 20240527
  Transmission Date: 20240715
  Serious: Yes (Other)
  Sender: FDA-Public Use
  Company Number: JP-BELUSA-2024BELLIT0054

PATIENT

DRUGS (3)
  1. HEPARIN SODIUM [Suspect]
     Active Substance: HEPARIN SODIUM
     Indication: Thrombosis prophylaxis
  2. VORICONAZOLE [Concomitant]
     Active Substance: VORICONAZOLE
     Dosage: 800 MG ON THE FIRST DAY AND THEN 400 MG PER DAY
     Route: 065
  3. METHYLPREDNISOLONE [Concomitant]
     Active Substance: METHYLPREDNISOLONE
     Indication: Respiratory failure
     Dosage: DOSES WERE REDUCED BY HALF EVERY 3 DAYS
     Route: 065

REACTIONS (1)
  - Drug ineffective [Unknown]
